FAERS Safety Report 7552223-0 (Version None)
Quarter: 2011Q2

REPORT INFORMATION
  Report Type: 
  Country: None (occurrence: None)
  Receive Date: 20110616
  Receipt Date: 20040209
  Transmission Date: 20111010
  Serious: Yes (Death, Hospitalization, Other)
  Sender: FDA-Public Use
  Company Number: PHHO2004JP00824

PATIENT
  Sex: Male
  Weight: 57 kg

DRUGS (7)
  1. ALFAROL [Concomitant]
     Indication: HYPOCALCAEMIA
     Dosage: 1 MG, UNK
     Route: 048
     Dates: start: 20021104, end: 20030415
  2. PLETAL [Suspect]
     Indication: THROMBOSIS PROPHYLAXIS
     Dates: start: 20021104, end: 20030415
  3. DIOVAN [Suspect]
     Indication: HYPERTENSION
     Dosage: 80 MG, QD
     Route: 048
     Dates: start: 20021104, end: 20030415
  4. ASPIRIN [Suspect]
     Indication: PROPHYLAXIS
     Dosage: 81 MG, UNK
     Route: 048
     Dates: start: 20021104, end: 20030415
  5. NORVASC [Concomitant]
     Indication: HYPERTENSION
     Dates: end: 20030415
  6. ROCORNAL [Concomitant]
     Indication: THROMBOSIS PROPHYLAXIS
     Dates: start: 20021104, end: 20030415
  7. CALCIUM CARBONATE [Concomitant]
     Indication: HYPOCALCAEMIA
     Dosage: 3 G, UNK
     Route: 048
     Dates: start: 20021104, end: 20030415

REACTIONS (2)
  - CEREBRAL HAEMORRHAGE [None]
  - BLOOD PRESSURE INADEQUATELY CONTROLLED [None]
